FAERS Safety Report 18140753 (Version 2)
Quarter: 2021Q1

REPORT INFORMATION
  Report Type: Spontaneous
  Country: JP (occurrence: JP)
  Receive Date: 20200812
  Receipt Date: 20210325
  Transmission Date: 20210419
  Serious: Yes (Other)
  Sender: FDA-Public Use
  Company Number: JP-BRISTOL-MYERS SQUIBB COMPANY-BMS-2019-029979

PATIENT
  Age: 48 Year
  Sex: Female
  Weight: 71.7 kg

DRUGS (4)
  1. YERVOY [Suspect]
     Active Substance: IPILIMUMAB
     Indication: CHOROID MELANOMA
     Dosage: UNK
     Route: 041
     Dates: start: 201409, end: 201910
  2. OPDIVO [Suspect]
     Active Substance: NIVOLUMAB
     Dosage: UNK
     Route: 041
     Dates: start: 201409, end: 201910
  3. YERVOY [Suspect]
     Active Substance: IPILIMUMAB
     Dosage: 3 MILLIGRAM/KILOGRAM, Q2WK
     Route: 041
     Dates: start: 20180625, end: 20180625
  4. OPDIVO [Suspect]
     Active Substance: NIVOLUMAB
     Indication: MALIGNANT MELANOMA
     Dosage: 220 MILLIGRAM, Q2WK
     Route: 041
     Dates: start: 20180418

REACTIONS (4)
  - Immune-mediated enterocolitis [Recovering/Resolving]
  - Leukoderma [Unknown]
  - Erythema [Unknown]
  - Angiopathy [Unknown]
